FAERS Safety Report 21192053 (Version 12)
Quarter: 2023Q2

REPORT INFORMATION
  Report Type: Report from Study
  Country: US (occurrence: US)
  Receive Date: 20220809
  Receipt Date: 20230427
  Transmission Date: 20230721
  Serious: No
  Sender: FDA-Public Use
  Company Number: US-NOVARTISTESTPH-NVSC2022US180099

PATIENT
  Age: 29 Year
  Sex: Female

DRUGS (6)
  1. KESIMPTA [Suspect]
     Active Substance: OFATUMUMAB
     Indication: Multiple sclerosis
     Dosage: 20 MG, QMO
     Route: 058
     Dates: start: 20220807
  2. KESIMPTA [Suspect]
     Active Substance: OFATUMUMAB
     Dosage: 20 MG, QW (INJECT 1 PEN)  (AT WEEK 0, WEEK 1 AND WEEK 2 AS DIRECTED)
     Route: 058
  3. KESIMPTA [Suspect]
     Active Substance: OFATUMUMAB
     Dosage: 20 MG, QMO
     Route: 058
  4. KESIMPTA [Suspect]
     Active Substance: OFATUMUMAB
     Dosage: (20 GTT (DROP), QMO
     Route: 058
     Dates: start: 20221019
  5. KESIMPTA [Suspect]
     Active Substance: OFATUMUMAB
     Dosage: UNK
     Route: 065
  6. CITALOPRAM [Concomitant]
     Active Substance: CITALOPRAM HYDROBROMIDE
     Indication: Product used for unknown indication
     Dosage: UNK
     Route: 065

REACTIONS (9)
  - Alopecia [Not Recovered/Not Resolved]
  - Pain [Recovered/Resolved]
  - Arthralgia [Recovering/Resolving]
  - Fatigue [Recovered/Resolved]
  - Pyrexia [Recovered/Resolved]
  - Fatigue [Recovered/Resolved]
  - Wrong technique in device usage process [Recovered/Resolved]
  - Incorrect dose administered by device [Recovered/Resolved]
  - Device issue [Unknown]

NARRATIVE: CASE EVENT DATE: 20220807
